FAERS Safety Report 17204705 (Version 2)
Quarter: 2021Q2

REPORT INFORMATION
  Report Type: Spontaneous
  Country: US (occurrence: US)
  Receive Date: 20191226
  Receipt Date: 20210416
  Transmission Date: 20210716
  Serious: Yes (Hospitalization, Other)
  Sender: FDA-Public Use
  Company Number: US-ASTRAZENECA-2019SF86655

PATIENT
  Age: 13473 Day
  Sex: Female

DRUGS (26)
  1. HEPARIN [Concomitant]
     Active Substance: HEPARIN SODIUM
  2. MIRALAX [Concomitant]
     Active Substance: POLYETHYLENE GLYCOL 3350
  3. ASPIRIN. [Concomitant]
     Active Substance: ASPIRIN
  4. PHOSLO [Concomitant]
     Active Substance: CALCIUM ACETATE
  5. TYLENOL [Concomitant]
     Active Substance: ACETAMINOPHEN
  6. PRILOSEC OTC [Suspect]
     Active Substance: OMEPRAZOLE MAGNESIUM
     Indication: GASTROOESOPHAGEAL REFLUX DISEASE
     Route: 048
     Dates: start: 200601, end: 201706
  7. HYDRALAZINE [Concomitant]
     Active Substance: HYDRALAZINE HYDROCHLORIDE
  8. ATORVASTATIN [Concomitant]
     Active Substance: ATORVASTATIN
  9. SODIUM CARBONATE [Concomitant]
     Active Substance: SODIUM CARBONATE
  10. DESYREL [Concomitant]
     Active Substance: TRAZODONE HYDROCHLORIDE
  11. AMBIEN [Concomitant]
     Active Substance: ZOLPIDEM TARTRATE
  12. GLUCOTROL [Concomitant]
     Active Substance: GLIPIZIDE
  13. METAMUCIL [Concomitant]
     Active Substance: PLANTAGO SEED
  14. ROCALTROL [Concomitant]
     Active Substance: CALCITRIOL
  15. PRILOSEC [Suspect]
     Active Substance: OMEPRAZOLE MAGNESIUM
     Indication: GASTROOESOPHAGEAL REFLUX DISEASE
     Route: 048
     Dates: start: 200601, end: 201706
  16. FERROUS SULFATE. [Concomitant]
     Active Substance: FERROUS SULFATE
  17. NORVASC [Concomitant]
     Active Substance: AMLODIPINE BESYLATE
  18. ZOVIRAX [Concomitant]
     Active Substance: ACYCLOVIR
  19. DIFLUCAN [Concomitant]
     Active Substance: FLUCONAZOLE
  20. PRILOSEC [Suspect]
     Active Substance: OMEPRAZOLE MAGNESIUM
     Indication: GASTROOESOPHAGEAL REFLUX DISEASE
     Route: 048
     Dates: start: 200601, end: 201706
  21. PRILOSEC OTC [Suspect]
     Active Substance: OMEPRAZOLE MAGNESIUM
     Indication: GASTROOESOPHAGEAL REFLUX DISEASE
     Route: 048
     Dates: start: 200601, end: 201706
  22. METOPROLOL. [Concomitant]
     Active Substance: METOPROLOL
  23. ZOFRAN [Concomitant]
     Active Substance: ONDANSETRON HYDROCHLORIDE
  24. SENOKOT [Concomitant]
     Active Substance: SENNOSIDES
  25. CARDURA [Concomitant]
     Active Substance: DOXAZOSIN MESYLATE
  26. COREG [Concomitant]
     Active Substance: CARVEDILOL

REACTIONS (5)
  - Renal tubular injury [Unknown]
  - Acute kidney injury [Not Recovered/Not Resolved]
  - Chronic kidney disease [Not Recovered/Not Resolved]
  - Nephrogenic anaemia [Unknown]
  - End stage renal disease [Not Recovered/Not Resolved]

NARRATIVE: CASE EVENT DATE: 20170314
